FAERS Safety Report 9190128 (Version 3)
Quarter: 2014Q1

REPORT INFORMATION
  Report Type: Spontaneous
  Country: FR (occurrence: FR)
  Receive Date: 20130326
  Receipt Date: 20140218
  Transmission Date: 20141002
  Serious: Yes (Other)
  Sender: FDA-Public Use
  Company Number: FR-JNJFOC-20130312293

PATIENT
  Sex: 0

DRUGS (1)
  1. REMICADE [Suspect]
     Indication: CROHN^S DISEASE
     Route: 042

REACTIONS (6)
  - Infusion related reaction [Unknown]
  - Feeling hot [Unknown]
  - Suffocation feeling [Unknown]
  - Respiratory disorder [Unknown]
  - Erythema [Unknown]
  - Oxygen saturation decreased [Unknown]
